FAERS Safety Report 7504821-8 (Version None)
Quarter: 2011Q2

REPORT INFORMATION
  Report Type: 
  Country: None (occurrence: None)
  Receive Date: 20110525
  Receipt Date: 20110311
  Transmission Date: 20111010
  Serious: No
  Sender: FDA-Public Use
  Company Number: US-AMGEN-USASP2011000817

PATIENT
  Age: 77 Year
  Sex: Male
  Weight: 112.47 kg

DRUGS (19)
  1. LIPITOR [Concomitant]
     Dosage: 5 MG, QD
  2. METFORMIN HCL [Concomitant]
     Dosage: 1000 MG, BID
  3. PROCRIT [Suspect]
     Dosage: 40000 IU, QWK
     Dates: start: 20110101
  4. ARANESP [Suspect]
     Indication: MYELODYSPLASTIC SYNDROME
     Dosage: UNK UNK, Q2WK
     Dates: start: 20101201
  5. ZANTAC                             /00550801/ [Concomitant]
     Dosage: 150 MG, QD
  6. ASPIRIN [Concomitant]
     Dosage: 81 MG, BID
  7. CENTRUM                            /01536001/ [Concomitant]
     Dosage: UNK
  8. KLOR-CON [Concomitant]
     Dosage: 20 MEQ, UNK
  9. LASIX [Concomitant]
     Dosage: 40 MG, UNK
  10. LANTUS [Concomitant]
     Dosage: 46 UNIT, QD
  11. NIASPAN [Concomitant]
     Dosage: 1000 MG, BID
  12. TOPROL-XL [Concomitant]
     Dosage: 50 MG, UNK
  13. FLOMAX [Concomitant]
     Dosage: 0.4 MG, UNK
  14. VITAMIN B-12 [Concomitant]
     Dosage: 1000 A?G, QMO
  15. PROCRIT [Suspect]
     Indication: MYELODYSPLASTIC SYNDROME
     Dosage: 40000 IU, QWK
     Dates: start: 20090101, end: 20090101
  16. CALCIUM WITH VITAMIN D             /00944201/ [Concomitant]
     Dosage: UNK
  17. PROSCAR [Concomitant]
     Dosage: 5 MG, UNK
  18. VITAMIN A [Concomitant]
     Dosage: 1.25 MG, UNK
  19. FOSAMAX [Concomitant]
     Dosage: UNK

REACTIONS (8)
  - THERAPEUTIC RESPONSE DECREASED [None]
  - RESPIRATORY TRACT INFECTION [None]
  - TENDONITIS [None]
  - MALAISE [None]
  - FEELING HOT [None]
  - ARTHRITIS [None]
  - HEADACHE [None]
  - ALLOIMMUNISATION [None]
